FAERS Safety Report 11434259 (Version 2)
Quarter: 2015Q3

REPORT INFORMATION
  Report Type: Spontaneous
  Country: US (occurrence: US)
  Receive Date: 20150831
  Receipt Date: 20150929
  Transmission Date: 20151125
  Serious: Yes (Other)
  Sender: FDA-Public Use
  Company Number: US-BAYER-2015-411306

PATIENT
  Age: 23 Year
  Sex: Female
  Weight: 111.11 kg

DRUGS (5)
  1. OXYCODONE [Concomitant]
     Active Substance: OXYCODONE
  2. MIRENA [Suspect]
     Active Substance: LEVONORGESTREL
     Indication: CONTRACEPTION
     Dosage: 20 MCG/24HR, CONT
     Route: 015
     Dates: start: 201504
  3. LAMICTAL [Concomitant]
     Active Substance: LAMOTRIGINE
  4. TIZANIDINE. [Concomitant]
     Active Substance: TIZANIDINE
  5. NEURONTIN [Concomitant]
     Active Substance: GABAPENTIN

REACTIONS (1)
  - Device dislocation [None]

NARRATIVE: CASE EVENT DATE: 2015
